FAERS Safety Report 22369954 (Version 1)
Quarter: 2023Q2

REPORT INFORMATION
  Report Type: Spontaneous
  Country: AU (occurrence: AU)
  Receive Date: 20230526
  Receipt Date: 20230526
  Transmission Date: 20230721
  Serious: Yes (Hospitalization)
  Sender: FDA-Public Use
  Company Number: AU-GALDERMA-AU2023007644

PATIENT

DRUGS (1)
  1. BENZAC AC [Suspect]
     Active Substance: BENZOYL PEROXIDE
     Indication: Acne
     Dosage: 1 DOSAGE FORM, EVERYDAY
     Route: 061
     Dates: start: 20230508, end: 20230511

REACTIONS (4)
  - Rash erythematous [Recovering/Resolving]
  - Application site swelling [Recovering/Resolving]
  - Application site erythema [Not Recovered/Not Resolved]
  - Application site hypersensitivity [Not Recovered/Not Resolved]

NARRATIVE: CASE EVENT DATE: 20230511
